FAERS Safety Report 6051906-1 (Version None)
Quarter: 2009Q1

REPORT INFORMATION
  Report Type: 
  Country: None (occurrence: None)
  Receive Date: 20090122
  Receipt Date: 20090122
  Transmission Date: 20090719
  Serious: Yes (Other)
  Sender: FDA-Public Use
  Company Number: None

PATIENT
  Age: 41 Year
  Sex: Female
  Weight: 71.2147 kg

DRUGS (1)
  1. MIRENA [Suspect]
     Indication: CONTRACEPTION
     Dosage: MONTHLY INTRA-UTERINE
     Route: 015
     Dates: start: 20051205, end: 20081215

REACTIONS (11)
  - ANXIETY [None]
  - ARTHRALGIA [None]
  - FATIGUE [None]
  - HEADACHE [None]
  - HYPERTENSION [None]
  - MALAISE [None]
  - MIGRAINE [None]
  - NECK PAIN [None]
  - PANIC ATTACK [None]
  - TENSION HEADACHE [None]
  - WEIGHT INCREASED [None]
